FAERS Safety Report 10233781 (Version 2)
Quarter: 2014Q2

REPORT INFORMATION
  Report Type: Spontaneous
  Country: US (occurrence: US)
  Receive Date: 20140612
  Receipt Date: 20140626
  Transmission Date: 20141212
  Serious: Yes (Death, Other)
  Sender: FDA-Public Use
  Company Number: US-BAXTER-2014BAX029444

PATIENT
  Sex: Male

DRUGS (7)
  1. DIANEAL LOW CALCIUM [Suspect]
     Indication: PERITONEAL DIALYSIS
     Route: 033
     Dates: end: 20140605
  2. DIANEAL LOW CALCIUM [Suspect]
     Route: 033
     Dates: end: 20140605
  3. DIANEAL LOW CALCIUM [Suspect]
     Indication: PERITONEAL DIALYSIS
     Route: 033
     Dates: end: 20140605
  4. DIANEAL LOW CALCIUM [Suspect]
     Route: 033
     Dates: end: 20140605
  5. DIANEAL LOW CALCIUM (ULTRABAG) [Suspect]
     Indication: PERITONEAL DIALYSIS
     Route: 033
  6. DIANEAL LOW CALCIUM (ULTRABAG) [Suspect]
     Indication: PERITONEAL DIALYSIS
     Route: 033
     Dates: end: 20140605
  7. HYDROCODONE [Suspect]
     Indication: FOOT FRACTURE
     Route: 048

REACTIONS (3)
  - Death [Fatal]
  - Foot fracture [Unknown]
  - Fall [Unknown]
